FAERS Safety Report 25259974 (Version 1)
Quarter: 2025Q2

REPORT INFORMATION
  Report Type: Spontaneous
  Country: US (occurrence: None)
  Receive Date: 20250501
  Receipt Date: 20250501
  Transmission Date: 20250717
  Serious: Yes (Other)
  Sender: FDA-CTU
  Company Number: None

PATIENT
  Age: 67 Year
  Sex: Male
  Weight: 89.55 kg

DRUGS (18)
  1. ALBUTEROL SULFATE [Suspect]
     Active Substance: ALBUTEROL SULFATE
     Indication: Upper respiratory tract infection
  2. RALTEGRAVIR POTASSIUM [Concomitant]
     Active Substance: RALTEGRAVIR POTASSIUM
  3. PREZISTA [Concomitant]
     Active Substance: DARUNAVIR ETHANOLATE
  4. Etravirinne [Concomitant]
  5. VEMLIDY [Concomitant]
     Active Substance: TENOFOVIR ALAFENAMIDE FUMARATE
  6. NORVIR [Concomitant]
     Active Substance: RITONAVIR
  7. ROSUVASTATIN [Concomitant]
     Active Substance: ROSUVASTATIN
  8. VALACYCLOVIR [Concomitant]
     Active Substance: VALACYCLOVIR HYDROCHLORIDE
  9. FISH OIL [Concomitant]
     Active Substance: FISH OIL
  10. COENZYME Q10 [Concomitant]
     Active Substance: DIETARY SUPPLEMENT\UBIDECARENONE
  11. GTE chromium [Concomitant]
  12. Vit D 3 [Concomitant]
  13. Vit B2 [Concomitant]
  14. BETA CAROTENE [Concomitant]
     Active Substance: BETA CAROTENE
  15. ZINC [Concomitant]
     Active Substance: ZINC
  16. PANTOTHENIC ACID [Concomitant]
     Active Substance: PANTOTHENIC ACID
  17. GLUCOSAMINE [Concomitant]
     Active Substance: GLUCOSAMINE
  18. DIMETHYL SULFONE [Concomitant]
     Active Substance: DIMETHYL SULFONE

REACTIONS (2)
  - Bronchospasm [None]
  - Dysphagia [None]

NARRATIVE: CASE EVENT DATE: 20250425
